FAERS Safety Report 14718725 (Version 1)
Quarter: 2018Q2

REPORT INFORMATION
  Report Type: Spontaneous
  Country: US (occurrence: US)
  Receive Date: 20180405
  Receipt Date: 20180405
  Transmission Date: 20180711
  Serious: No
  Sender: FDA-Public Use
  Company Number: US-B.I. PHARMACEUTICALS,INC./RIDGEFIELD-2018-BI-018115

PATIENT
  Sex: Male

DRUGS (1)
  1. OFEV [Suspect]
     Active Substance: NINTEDANIB
     Indication: IDIOPATHIC PULMONARY FIBROSIS
     Dosage: STRENGTH: 150 MG; ADMINISTRATION CORRECT? NR(NOT REPORTED); ACTION TAKEN WITH PRODUCT: NOT REPORTED
     Route: 048
     Dates: start: 20170907

REACTIONS (2)
  - Dyspnoea [Not Recovered/Not Resolved]
  - Diarrhoea [Unknown]
